FAERS Safety Report 7064597-8 (Version None)
Quarter: 2010Q4

REPORT INFORMATION
  Report Type: 
  Country: None (occurrence: None)
  Receive Date: 20101022
  Receipt Date: 20101022
  Transmission Date: 20110411
  Serious: No
  Sender: FDA-Public Use
  Company Number: None

PATIENT

DRUGS (1)
  1. COZAAR [Suspect]

REACTIONS (3)
  - BLOOD PRESSURE SYSTOLIC INCREASED [None]
  - PRODUCT SUBSTITUTION ISSUE [None]
  - TINNITUS [None]
